FAERS Safety Report 8617492-4 (Version None)
Quarter: 2012Q3

REPORT INFORMATION
  Report Type: 
  Country: None (occurrence: None)
  Receive Date: 20120824
  Receipt Date: 20111031
  Transmission Date: 20120928
  Serious: No
  Sender: FDA-Public Use
  Company Number: US-ASTRAZENECA-2011SE65697

PATIENT
  Age: 76 Year
  Sex: Male
  Weight: 73.5 kg

DRUGS (2)
  1. ALBUTEROL [Concomitant]
     Indication: CHRONIC OBSTRUCTIVE PULMONARY DISEASE
     Route: 045
  2. SYMBICORT [Suspect]
     Indication: CHRONIC OBSTRUCTIVE PULMONARY DISEASE
     Dosage: 160/4.5 MCG, 2 PUFFS, TWICE DAILY
     Route: 055
     Dates: start: 20111029

REACTIONS (6)
  - DYSPNOEA [None]
  - INSOMNIA [None]
  - BACK PAIN [None]
  - COUGH [None]
  - INTERVERTEBRAL DISC DEGENERATION [None]
  - INCREASED UPPER AIRWAY SECRETION [None]
